FAERS Safety Report 6519088-7 (Version None)
Quarter: 2009Q4

REPORT INFORMATION
  Report Type: 
  Country: None (occurrence: None)
  Receive Date: 20091228
  Receipt Date: 20091221
  Transmission Date: 20100525
  Serious: Yes (Death)
  Sender: FDA-Public Use
  Company Number: US-ROCHE-676337

PATIENT
  Sex: Female

DRUGS (1)
  1. TRASTUZUMAB [Suspect]
     Dosage: FIRST DOSE OF 4 MG/KG OVER 90 MIN AND SUBSEQUENT DOSES OF 2 MG/KG OVER 30 MIN, FORM: INFUSION
     Route: 042

REACTIONS (1)
  - CARDIO-RESPIRATORY ARREST [None]
